FAERS Safety Report 15135261 (Version 4)
Quarter: 2018Q3

REPORT INFORMATION
  Report Type: Report from Study
  Country: DE (occurrence: DE)
  Receive Date: 20180712
  Receipt Date: 20180719
  Transmission Date: 20181010
  Serious: Yes (Death, Congenital Anomaly)
  Sender: FDA-Public Use
  Company Number: DE-PFIZER INC-2018280502

PATIENT

DRUGS (5)
  1. ISOTRETINOIN. [Suspect]
     Active Substance: ISOTRETINOIN
     Dosage: IN THE FIRST TRIMESTER
     Route: 064
  2. NICOTINE. [Concomitant]
     Active Substance: NICOTINE
     Dosage: IN THE FIRST TRIMESTER
     Route: 064
  3. DROSPIRENONE [Concomitant]
     Active Substance: DROSPIRENONE
     Dosage: IN THE FIRST TRIMESTER
     Route: 064
  4. ELETRIPTAN HBR [Suspect]
     Active Substance: ELETRIPTAN HYDROBROMIDE
     Indication: MIGRAINE
     Dosage: IN THE THIRD WEEK OF GESTATION
     Route: 064
  5. ETHINYLESTRADIOL [Concomitant]
     Active Substance: ETHINYL ESTRADIOL
     Dosage: IN THE FIRST TRIMESTER
     Route: 064

REACTIONS (3)
  - Maternal exposure during pregnancy [Unknown]
  - Cleft lip and palate [Fatal]
  - Abortion spontaneous [Fatal]
